FAERS Safety Report 6620846-9 (Version None)
Quarter: 2010Q1

REPORT INFORMATION
  Report Type: 
  Country: None (occurrence: None)
  Receive Date: 20100309
  Receipt Date: 20090519
  Transmission Date: 20100710
  Serious: No
  Sender: FDA-Public Use
  Company Number: US-BIOGENIDEC-2009BI015213

PATIENT
  Age: 34 Year
  Sex: Female

DRUGS (1)
  1. AVONEX [Suspect]
     Indication: MULTIPLE SCLEROSIS
     Route: 030
     Dates: start: 20090407

REACTIONS (8)
  - APHONIA [None]
  - BONE PAIN [None]
  - CRYING [None]
  - DEHYDRATION [None]
  - INFLUENZA [None]
  - INJECTION SITE PAIN [None]
  - MOBILITY DECREASED [None]
  - VOMITING [None]
